FAERS Safety Report 16232831 (Version 1)
Quarter: 2019Q2

REPORT INFORMATION
  Report Type: Spontaneous
  Country: US (occurrence: US)
  Receive Date: 20190424
  Receipt Date: 20190424
  Transmission Date: 20190711
  Serious: No
  Sender: FDA-Public Use
  Company Number: US-SA-2019SA106594

PATIENT
  Age: 75 Year
  Sex: Female

DRUGS (1)
  1. ALLEGRA-D 24 HOUR [Suspect]
     Active Substance: FEXOFENADINE HYDROCHLORIDE\PSEUDOEPHEDRINE HYDROCHLORIDE
     Indication: HYPERSENSITIVITY
     Dosage: UNK
     Route: 065

REACTIONS (10)
  - Inappropriate affect [Unknown]
  - Product storage error [Unknown]
  - Irritability [Unknown]
  - Abdominal discomfort [Unknown]
  - Crying [Unknown]
  - Insomnia [Unknown]
  - Agitation [Unknown]
  - Nervousness [Unknown]
  - Feeling jittery [Unknown]
  - Wrong technique in product usage process [Unknown]
